FAERS Safety Report 12214965 (Version 1)
Quarter: 2016Q1

REPORT INFORMATION
  Report Type: Spontaneous
  Country: US (occurrence: US)
  Receive Date: 20160328
  Receipt Date: 20160328
  Transmission Date: 20160526
  Serious: Yes (Hospitalization)
  Sender: FDA-Public Use
  Company Number: US-JAZZ-2015-US-010343

PATIENT
  Age: 54 Year
  Sex: Male

DRUGS (3)
  1. AVELOX [Concomitant]
     Active Substance: MOXIFLOXACIN HYDROCHLORIDE
  2. CLOZAPINE USP, ODT [Suspect]
     Active Substance: CLOZAPINE
     Dosage: 25-150 MG, QD
     Route: 048
     Dates: start: 20150601, end: 20150618
  3. RISPERDAL [Suspect]
     Active Substance: RISPERIDONE

REACTIONS (4)
  - Blood alkaline phosphatase increased [Recovered/Resolved]
  - Alanine aminotransferase increased [Recovered/Resolved]
  - Eosinophilia [Recovered/Resolved]
  - Aspartate aminotransferase increased [Recovered/Resolved]

NARRATIVE: CASE EVENT DATE: 20150618
